FAERS Safety Report 13998792 (Version 1)
Quarter: 2017Q3

REPORT INFORMATION
  Report Type: Not Available
  Country: US (occurrence: US)
  Receive Date: 20170921
  Receipt Date: 20170921
  Transmission Date: 20171128
  Serious: No
  Sender: FDA-Public Use
  Company Number: US-NEUROCRINE BIOSCIENCES INC.-2017NBI00622

PATIENT
  Age: 73 Year
  Sex: Female

DRUGS (20)
  1. OXYCODINE [Concomitant]
  2. INGREZZA [Suspect]
     Active Substance: VALBENAZINE
     Indication: PRODUCT USED FOR UNKNOWN INDICATION
     Route: 048
     Dates: start: 20170730, end: 20170802
  3. BIOTIN [Concomitant]
     Active Substance: BIOTIN
  4. CIPROFLOXACIN. [Concomitant]
     Active Substance: CIPROFLOXACIN
  5. CLONAZEPAM. [Concomitant]
     Active Substance: CLONAZEPAM
  6. LOSARTAN. [Concomitant]
     Active Substance: LOSARTAN
  7. PROPRANOLOL [Concomitant]
     Active Substance: PROPRANOLOL HYDROCHLORIDE
  8. IBUPROFEN. [Concomitant]
     Active Substance: IBUPROFEN
  9. REXULTI [Concomitant]
     Active Substance: BREXPIPRAZOLE
  10. VITAMIN C [Concomitant]
     Active Substance: ASCORBIC ACID
  11. LEVOTHYROXINE. [Concomitant]
     Active Substance: LEVOTHYROXINE
  12. VITAMIN D [Concomitant]
     Active Substance: CHOLECALCIFEROL
  13. MELATONIN [Concomitant]
     Active Substance: MELATONIN
  14. MORPHINE [Concomitant]
     Active Substance: MORPHINE
  15. SENNA S [Concomitant]
     Active Substance: DOCUSATE SODIUM\SENNA LEAF
  16. ZOLPIDEM [Concomitant]
     Active Substance: ZOLPIDEM\ZOLPIDEM TARTRATE
  17. LEXAPRO [Concomitant]
     Active Substance: ESCITALOPRAM OXALATE
  18. CLONICINE [Concomitant]
  19. TRAZODONE [Concomitant]
     Active Substance: TRAZODONE HYDROCHLORIDE
  20. VITAMIN B [Concomitant]
     Active Substance: VITAMIN B

REACTIONS (4)
  - Somnolence [Unknown]
  - Ataxia [Recovered/Resolved]
  - Incontinence [Recovered/Resolved]
  - Fatigue [Recovered/Resolved]

NARRATIVE: CASE EVENT DATE: 20170730
